FAERS Safety Report 7088785-X (Version None)
Quarter: 2010Q4

REPORT INFORMATION
  Report Type: 
  Country: None (occurrence: None)
  Receive Date: 20101108
  Receipt Date: 20101025
  Transmission Date: 20110411
  Serious: Yes (Hospitalization, Other)
  Sender: FDA-Public Use
  Company Number: PHHY2010FR68952

PATIENT
  Sex: Male
  Weight: 80 kg

DRUGS (4)
  1. TASIGNA [Suspect]
     Indication: CHRONIC MYELOID LEUKAEMIA
     Dosage: 200 MG DAILY
     Dates: start: 20100501
  2. TASIGNA [Suspect]
     Dosage: 200 MG, BID
     Dates: start: 20100608, end: 20100907
  3. SPRYCEL [Concomitant]
     Dosage: UNK
     Dates: start: 20091001
  4. PEGASYS [Concomitant]

REACTIONS (13)
  - ANAEMIA [None]
  - BONE MARROW FAILURE [None]
  - FATIGUE [None]
  - HAEMOGLOBIN DECREASED [None]
  - INFECTION [None]
  - LEUKOPENIA [None]
  - NEUTROPENIA [None]
  - NEUTROPHIL COUNT DECREASED [None]
  - PALLOR [None]
  - PANCYTOPENIA [None]
  - PLATELET COUNT DECREASED [None]
  - PYREXIA [None]
  - THROMBOCYTOPENIA [None]
